FAERS Safety Report 12885088 (Version 2)
Quarter: 2016Q4

REPORT INFORMATION
  Report Type: Spontaneous
  Country: GB (occurrence: GB)
  Receive Date: 20161026
  Receipt Date: 20161121
  Transmission Date: 20170207
  Serious: Yes (Other)
  Sender: FDA-Public Use
  Company Number: PHHY2016GB145224

PATIENT
  Sex: Male

DRUGS (2)
  1. ACLASTA [Suspect]
     Active Substance: ZOLEDRONIC ACID
     Indication: COELIAC DISEASE
     Dosage: 5 MG/100 ML
     Route: 042
     Dates: start: 20160914
  2. ACLASTA [Suspect]
     Active Substance: ZOLEDRONIC ACID
     Indication: GASTRIC DISORDER

REACTIONS (5)
  - Product use issue [Unknown]
  - Swelling face [Unknown]
  - Pain in jaw [Unknown]
  - Contusion [Unknown]
  - Osteonecrosis of jaw [Unknown]

NARRATIVE: CASE EVENT DATE: 20161017
